FAERS Safety Report 9299224 (Version 2)
Quarter: 2013Q2

REPORT INFORMATION
  Report Type: Spontaneous
  Country: GB (occurrence: GB)
  Receive Date: 20130520
  Receipt Date: 20130620
  Transmission Date: 20140414
  Serious: Yes (Life-Threatening, Other)
  Sender: FDA-Public Use
  Company Number: GB-009507513-1305GBR001446

PATIENT
  Sex: Male

DRUGS (1)
  1. ONCOTICE [Suspect]

REACTIONS (27)
  - Surgery [Unknown]
  - Convulsion [Unknown]
  - Night sweats [Unknown]
  - Bone pain [Unknown]
  - Hypokinesia [Unknown]
  - Rectal haemorrhage [Unknown]
  - Musculoskeletal stiffness [Unknown]
  - Mental status changes [Unknown]
  - Vision blurred [Unknown]
  - Metabolic syndrome [Unknown]
  - Pain [Unknown]
  - Confusional state [Unknown]
  - Cough [Unknown]
  - Weight decreased [Unknown]
  - Abdominal pain [Unknown]
  - Pollakiuria [Unknown]
  - Dysuria [Unknown]
  - Lymph node tuberculosis [Unknown]
  - Bone tuberculosis [Unknown]
  - Tuberculosis gastrointestinal [Unknown]
  - Tuberculosis of genitourinary system [Unknown]
  - Tuberculosis of central nervous system [Unknown]
  - Lymphadenopathy [Unknown]
  - Decreased appetite [Unknown]
  - Pyrexia [Unknown]
  - Fatigue [Unknown]
  - Headache [Unknown]
